FAERS Safety Report 4889507-0 (Version None)
Quarter: 2006Q1

REPORT INFORMATION
  Report Type: 
  Country: None (occurrence: None)
  Receive Date: 20060120
  Receipt Date: 20060110
  Transmission Date: 20060701
  Serious: Yes (Other)
  Sender: FDA-Public Use
  Company Number: 2006006689

PATIENT
  Age: 79 Year
  Sex: Female
  Weight: 56.6996 kg

DRUGS (5)
  1. XALATAN [Suspect]
     Indication: CATARACT OPERATION
     Dosage: SEE IMAGE
     Route: 047
     Dates: start: 20030201, end: 20040101
  2. XALATAN [Suspect]
     Indication: CATARACT OPERATION
     Dosage: SEE IMAGE
     Route: 047
     Dates: start: 20060107
  3. TENORMIN [Concomitant]
  4. ALDACTONE [Concomitant]
  5. PREMARIN [Concomitant]

REACTIONS (4)
  - ASTHENIA [None]
  - CARPAL TUNNEL SYNDROME [None]
  - CONDITION AGGRAVATED [None]
  - IMPAIRED DRIVING ABILITY [None]
